FAERS Safety Report 9247547 (Version 1)
Quarter: 2013Q1

REPORT INFORMATION
  Report Type: Spontaneous
  Country: US (occurrence: None)
  Receive Date: 20121130
  Receipt Date: 20121130
  Transmission Date: 20140127
  Serious: Yes (Other)
  Sender: FDA-Public Use
  Company Number: FK201201564

PATIENT
  Sex: Male

DRUGS (4)
  1. FLUOROURACIL [Suspect]
     Indication: COLON CANCER METASTATIC
  2. OXALIPLATIN (OXALIPLATIN) [Concomitant]
  3. LEUCOVORIN (CALCIUM FOLINATE) [Concomitant]
  4. AVASTIN (SIMVASTATIN) [Concomitant]

REACTIONS (4)
  - Swelling [None]
  - Neuropathy peripheral [None]
  - Rash [None]
  - Epistaxis [None]
